FAERS Safety Report 9760386 (Version 3)
Quarter: 2015Q3

REPORT INFORMATION
  Report Type: Spontaneous
  Country: US (occurrence: US)
  Receive Date: 20131216
  Receipt Date: 20150806
  Transmission Date: 20151125
  Serious: No
  Sender: FDA-Public Use
  Company Number: US-GILEAD-2010-0029591

PATIENT
  Age: 84 Year
  Sex: Female
  Weight: 127.1 kg

DRUGS (11)
  1. BONIVA [Concomitant]
     Active Substance: IBANDRONATE SODIUM
  2. METOPROLOL [Concomitant]
     Active Substance: METOPROLOL
  3. TYLENOL [Concomitant]
     Active Substance: ACETAMINOPHEN
  4. LETAIRIS [Suspect]
     Active Substance: AMBRISENTAN
     Indication: PULMONARY ARTERIAL HYPERTENSION
     Route: 048
     Dates: start: 20100510, end: 20100601
  5. FLECAINIDE ACETATE. [Concomitant]
     Active Substance: FLECAINIDE ACETATE
  6. REVATIO [Concomitant]
     Active Substance: SILDENAFIL CITRATE
  7. LASIX [Concomitant]
     Active Substance: FUROSEMIDE
  8. VITAMIN C [Concomitant]
     Active Substance: ASCORBIC ACID
  9. CALTRATE WITH VITAMIN D [Concomitant]
     Active Substance: CALCIUM CARBONATE\CHOLECALCIFEROL
  10. SYNTHROID [Concomitant]
     Active Substance: LEVOTHYROXINE SODIUM
  11. LISINOPRIL. [Concomitant]
     Active Substance: LISINOPRIL

REACTIONS (3)
  - Dizziness [Unknown]
  - Peripheral swelling [Unknown]
  - Sinusitis [Unknown]
